FAERS Safety Report 9268990 (Version 2)
Quarter: 2013Q3

REPORT INFORMATION
  Report Type: Spontaneous
  Country: US (occurrence: US)
  Receive Date: 20130503
  Receipt Date: 20130704
  Transmission Date: 20140515
  Serious: Yes (Hospitalization)
  Sender: FDA-Public Use
  Company Number: US-BIOGENIDEC-2013BI036650

PATIENT
  Age: 51 Year
  Sex: Female

DRUGS (1)
  1. AVONEX [Suspect]
     Indication: MULTIPLE SCLEROSIS
     Route: 030
     Dates: start: 20121103

REACTIONS (10)
  - Multiple sclerosis relapse [Recovered/Resolved]
  - Skin disorder [Unknown]
  - Balance disorder [Unknown]
  - Fall [Recovered/Resolved]
  - Arthropathy [Recovered/Resolved with Sequelae]
  - Contusion [Recovered/Resolved]
  - Asthenia [Recovered/Resolved]
  - Confusional state [Unknown]
  - Arthralgia [Recovered/Resolved]
  - Musculoskeletal stiffness [Recovered/Resolved with Sequelae]
